FAERS Safety Report 9235051 (Version 4)
Quarter: 2014Q1

REPORT INFORMATION
  Report Type: Report from Study
  Country: ES (occurrence: ES)
  Receive Date: 20130416
  Receipt Date: 20140307
  Transmission Date: 20141002
  Serious: Yes (Hospitalization)
  Sender: FDA-Public Use
  Company Number: ES-BAYER-2013-017268

PATIENT
  Age: 66 Year
  Sex: Female
  Weight: 52 kg

DRUGS (13)
  1. REGORAFENIB [Suspect]
     Indication: COLORECTAL CANCER METASTATIC
     Dosage: DAILY DOSE 160 MG
     Route: 048
     Dates: start: 20130119, end: 20130123
  2. CODEISAN [Concomitant]
     Indication: SHORT-BOWEL SYNDROME
     Dosage: 3-4 TABS
     Route: 048
     Dates: start: 2002
  3. PROZAC [Concomitant]
     Indication: DEPRESSION
     Dosage: DAILY DOSE 20 MG
     Route: 048
  4. ORFIDAL [Concomitant]
     Indication: DEPRESSION
     Dosage: DAILY DOSE 1 MG
     Route: 048
  5. OPTOVITE B12 [Concomitant]
     Indication: SHORT-BOWEL SYNDROME
     Dosage: 1000 MCG/ 3W
     Route: 030
     Dates: start: 2002
  6. IDEOS [Concomitant]
     Indication: METASTASES TO BONE
     Dosage: DAILY DOSE 2 U
     Route: 048
     Dates: start: 2008
  7. CIPROFLOXACIN [Concomitant]
     Indication: SHORT-BOWEL SYNDROME
     Dosage: DAILY DOSE 250 MG
     Route: 048
  8. METRONIDAZOLE [Concomitant]
     Indication: SHORT-BOWEL SYNDROME
     Dosage: DAILY DOSE 500 MG
     Route: 048
  9. OMEPRAZOLE [Concomitant]
     Indication: PAIN PROPHYLAXIS
     Dosage: DAILY DOSE 20 MG
     Route: 048
  10. FENTANYL [Concomitant]
     Indication: PAIN
     Dosage: 25 MCG/ 72 H
     Route: 062
  11. ACTIQ [Concomitant]
     Indication: PAIN
     Dosage: UNK UNK, PRN
     Route: 048
  12. IBUPROFEN [IBUPROFEN] [Concomitant]
     Indication: PAIN
     Dosage: UNK UNK, PRN
     Route: 048
  13. ZOLEDRONIC ACID [Concomitant]
     Indication: METASTASES TO BONE
     Dosage: DAILY DOSE 4 MG
     Route: 042
     Dates: start: 20100820

REACTIONS (1)
  - Ileus [Recovered/Resolved]
